FAERS Safety Report 8432857-1 (Version None)
Quarter: 2012Q2

REPORT INFORMATION
  Report Type: 
  Country: None (occurrence: None)
  Receive Date: 20120613
  Receipt Date: 20120608
  Transmission Date: 20120825
  Serious: Yes (Other)
  Sender: FDA-Public Use
  Company Number: AR-ROCHE-1058111

PATIENT
  Sex: Male

DRUGS (2)
  1. LUCENTIS [Suspect]
     Indication: MACULOPATHY
     Dosage: ONE AMPOULE
     Route: 050
     Dates: start: 20100101, end: 20110101
  2. LUCENTIS [Suspect]
     Dosage: ONE AMPOULE
     Route: 050
     Dates: start: 20120201

REACTIONS (2)
  - INGUINAL HERNIA [None]
  - VISUAL ACUITY REDUCED [None]
